FAERS Safety Report 17791346 (Version 2)
Quarter: 2020Q2

REPORT INFORMATION
  Report Type: Spontaneous
  Country: US (occurrence: US)
  Receive Date: 20200515
  Receipt Date: 20200527
  Transmission Date: 20200714
  Serious: Yes (Other)
  Sender: FDA-Public Use
  Company Number: US-GLAXOSMITHKLINE-US2020AMR077842

PATIENT
  Sex: Male

DRUGS (1)
  1. ZEJULA [Suspect]
     Active Substance: NIRAPARIB
     Indication: LUNG CARCINOMA CELL TYPE UNSPECIFIED STAGE 0
     Dosage: 300 MG, QD
     Dates: start: 20200423

REACTIONS (9)
  - Decreased appetite [Unknown]
  - Malaise [Unknown]
  - Drug intolerance [Unknown]
  - Pleural effusion [Unknown]
  - Disease progression [Unknown]
  - Fluid intake reduced [Unknown]
  - Hospice care [Unknown]
  - Laboratory test abnormal [Unknown]
  - Product use in unapproved indication [Unknown]
